FAERS Safety Report 17820281 (Version 13)
Quarter: 2021Q3

REPORT INFORMATION
  Report Type: Report from Study
  Country: US (occurrence: US)
  Receive Date: 20200525
  Receipt Date: 20210917
  Transmission Date: 20211014
  Serious: Yes (Hospitalization, Other)
  Sender: FDA-Public Use
  Company Number: US-SHIRE-US202017132

PATIENT
  Sex: Female
  Weight: 58 kg

DRUGS (28)
  1. EFFEXOR [Concomitant]
     Active Substance: VENLAFAXINE HYDROCHLORIDE
     Indication: PRODUCT USED FOR UNKNOWN INDICATION
  2. CLARITHROMYCIN. [Concomitant]
     Active Substance: CLARITHROMYCIN
     Indication: PRODUCT USED FOR UNKNOWN INDICATION
  3. PREMARIN [Concomitant]
     Active Substance: ESTROGENS, CONJUGATED
     Indication: PRODUCT USED FOR UNKNOWN INDICATION
  4. SUCRALFATE. [Concomitant]
     Active Substance: SUCRALFATE
     Indication: PRODUCT USED FOR UNKNOWN INDICATION
  5. BACTRIM DS [Concomitant]
     Active Substance: SULFAMETHOXAZOLE\TRIMETHOPRIM
     Indication: PRODUCT USED FOR UNKNOWN INDICATION
  6. CYMBALTA [Concomitant]
     Active Substance: DULOXETINE HYDROCHLORIDE
     Indication: PRODUCT USED FOR UNKNOWN INDICATION
  7. CIPRO [Concomitant]
     Active Substance: CIPROFLOXACIN HYDROCHLORIDE
     Indication: PRODUCT USED FOR UNKNOWN INDICATION
  8. ERYTHROMYCIN. [Concomitant]
     Active Substance: ERYTHROMYCIN
     Indication: PRODUCT USED FOR UNKNOWN INDICATION
  9. DEXILANT [Concomitant]
     Active Substance: DEXLANSOPRAZOLE
     Indication: PRODUCT USED FOR UNKNOWN INDICATION
  10. ACETAMINOPHEN. [Concomitant]
     Active Substance: ACETAMINOPHEN
     Indication: PRODUCT USED FOR UNKNOWN INDICATION
  11. LMX4 [Concomitant]
     Active Substance: LIDOCAINE
     Indication: PRODUCT USED FOR UNKNOWN INDICATION
  12. HUMAN NORMAL IMMUNOGLOBULIN; LIQUID [Suspect]
     Active Substance: HUMAN IMMUNOGLOBULIN G
     Dosage: 10 GRAM, 1/WEEK
     Route: 058
     Dates: start: 20150622
  13. TRAZODONE [Concomitant]
     Active Substance: TRAZODONE HYDROCHLORIDE
     Indication: PRODUCT USED FOR UNKNOWN INDICATION
  14. AMLODIPINE BESYLATE. [Concomitant]
     Active Substance: AMLODIPINE BESYLATE
     Indication: PRODUCT USED FOR UNKNOWN INDICATION
  15. HUMAN NORMAL IMMUNOGLOBULIN; LIQUID [Suspect]
     Active Substance: HUMAN IMMUNOGLOBULIN G
     Dosage: 10 GRAM, 1/WEEK
     Route: 058
     Dates: start: 20150609
  16. DOXYCYCLINE HYCLATE. [Concomitant]
     Active Substance: DOXYCYCLINE HYCLATE
     Indication: PRODUCT USED FOR UNKNOWN INDICATION
  17. BOTOX [Concomitant]
     Active Substance: ONABOTULINUMTOXINA
     Indication: PRODUCT USED FOR UNKNOWN INDICATION
  18. GABAPENTIN. [Concomitant]
     Active Substance: GABAPENTIN
     Indication: PRODUCT USED FOR UNKNOWN INDICATION
  19. CYCLOBENZAPRINE. [Concomitant]
     Active Substance: CYCLOBENZAPRINE
     Indication: PRODUCT USED FOR UNKNOWN INDICATION
  20. DOXYCYCLINE. [Concomitant]
     Active Substance: DOXYCYCLINE
     Indication: PRODUCT USED FOR UNKNOWN INDICATION
  21. PROPRANOLOL [Concomitant]
     Active Substance: PROPRANOLOL HYDROCHLORIDE
     Indication: PRODUCT USED FOR UNKNOWN INDICATION
  22. DIPHENHYDRAMINE. [Concomitant]
     Active Substance: DIPHENHYDRAMINE
     Indication: PRODUCT USED FOR UNKNOWN INDICATION
  23. AMLODIPINE [Concomitant]
     Active Substance: AMLODIPINE BESYLATE
     Indication: PRODUCT USED FOR UNKNOWN INDICATION
  24. HUMAN NORMAL IMMUNOGLOBULIN; LIQUID [Suspect]
     Active Substance: HUMAN IMMUNOGLOBULIN G
     Indication: IMMUNODEFICIENCY COMMON VARIABLE
     Dosage: 10 GRAM, 1/WEEK
     Route: 058
     Dates: start: 20150608
  25. PROPANOLOL [Concomitant]
     Active Substance: PROPRANOLOL HYDROCHLORIDE
     Indication: PRODUCT USED FOR UNKNOWN INDICATION
  26. ESTRADIOL. [Concomitant]
     Active Substance: ESTRADIOL
     Indication: PRODUCT USED FOR UNKNOWN INDICATION
  27. OXYCODONE [Concomitant]
     Active Substance: OXYCODONE
     Indication: PRODUCT USED FOR UNKNOWN INDICATION
  28. EPINEPHRINE. [Concomitant]
     Active Substance: EPINEPHRINE
     Indication: PRODUCT USED FOR UNKNOWN INDICATION

REACTIONS (12)
  - Diverticulitis [Unknown]
  - Myocardial infarction [Unknown]
  - Urinary tract infection [Unknown]
  - Red blood cell count decreased [Unknown]
  - Pneumonia [Unknown]
  - Stress [Unknown]
  - Blood iron decreased [Unknown]
  - Product storage error [Unknown]
  - Infusion site swelling [Unknown]
  - Skin infection [Unknown]
  - Infection [Unknown]
  - Cystitis [Unknown]
